FAERS Safety Report 7080899-3 (Version None)
Quarter: 2010Q4

REPORT INFORMATION
  Report Type: 
  Country: None (occurrence: None)
  Receive Date: 20101103
  Receipt Date: 20101019
  Transmission Date: 20110411
  Serious: Yes (Life-Threatening)
  Sender: FDA-Public Use
  Company Number: US-JNJFOC-20101100801

PATIENT
  Age: 58 Year
  Sex: Female

DRUGS (4)
  1. FENTANYL [Suspect]
     Indication: ILL-DEFINED DISORDER
     Dosage: SEVERAL PATCHES
     Route: 062
  2. DIPHENHYDRAMINE HCL [Suspect]
     Indication: ILL-DEFINED DISORDER
     Dosage: UNKNOWN QUANTITY
     Route: 065
  3. LORAZEPAM [Concomitant]
     Route: 065
  4. IBUPROFEN [Concomitant]
     Route: 065

REACTIONS (9)
  - DRUG SCREEN POSITIVE [None]
  - FOREIGN BODY ASPIRATION [None]
  - HYPERTENSION [None]
  - MENTAL STATUS CHANGES [None]
  - OVERDOSE [None]
  - OXYGEN SATURATION DECREASED [None]
  - RESPIRATORY RATE DECREASED [None]
  - SINUS TACHYCARDIA [None]
  - UNRESPONSIVE TO STIMULI [None]
